FAERS Safety Report 8303967-4 (Version None)
Quarter: 2012Q2

REPORT INFORMATION
  Report Type: 
  Country: None (occurrence: None)
  Receive Date: 20120423
  Receipt Date: 20120420
  Transmission Date: 20120825
  Serious: Yes (Other)
  Sender: FDA-Public Use
  Company Number: PHHY2012BE009345

PATIENT
  Age: 2 Year
  Sex: Female
  Weight: 15 kg

DRUGS (1)
  1. EXJADE [Suspect]
     Indication: SICKLE CELL ANAEMIA
     Dosage: 250 MG, UNK
     Dates: start: 20110101, end: 20120406

REACTIONS (7)
  - SOMNOLENCE [None]
  - VIRAL INFECTION [None]
  - ABDOMINAL PAIN [None]
  - PSYCHIATRIC SYMPTOM [None]
  - SERUM FERRITIN INCREASED [None]
  - DIARRHOEA [None]
  - FATIGUE [None]
